FAERS Safety Report 21680921 (Version 1)
Quarter: 2022Q4

REPORT INFORMATION
  Report Type: Spontaneous
  Country: HR (occurrence: HR)
  Receive Date: 20221205
  Receipt Date: 20221205
  Transmission Date: 20230113
  Serious: Yes (Death, Hospitalization)
  Sender: FDA-Public Use
  Company Number: HR-009507513-2212HRV000242

PATIENT
  Sex: Female

DRUGS (1)
  1. KEYTRUDA [Suspect]
     Active Substance: PEMBROLIZUMAB
     Indication: Lung disorder
     Dosage: UNK; 2 CYCLES

REACTIONS (2)
  - Hypophysitis [Fatal]
  - Ill-defined disorder [Unknown]
